FAERS Safety Report 7452068 (Version 5)
Quarter: 2017Q3

REPORT INFORMATION
  Report Type: Spontaneous
  Country: US (occurrence: US)
  Receive Date: 20100702
  Receipt Date: 20170810
  Transmission Date: 20171128
  Serious: Yes (Hospitalization, Other)
  Sender: FDA-Public Use
  Company Number: US-JNJFOC-20100607621

PATIENT
  Age: 59 Year
  Sex: Male

DRUGS (2)
  1. LEVAQUIN [Suspect]
     Active Substance: LEVOFLOXACIN
     Indication: PSEUDOMONAS INFECTION
     Route: 048
     Dates: start: 20080528
  2. LEVAQUIN [Suspect]
     Active Substance: LEVOFLOXACIN
     Indication: INFECTION PROPHYLAXIS
     Route: 048
     Dates: start: 20080528

REACTIONS (23)
  - Nausea [Recovering/Resolving]
  - Weight decreased [Recovering/Resolving]
  - Decreased appetite [Recovering/Resolving]
  - Skin burning sensation [Recovering/Resolving]
  - Neurotoxicity [Recovering/Resolving]
  - Choking [Recovering/Resolving]
  - Tendonitis [Unknown]
  - Musculoskeletal stiffness [Unknown]
  - Palpitations [Recovering/Resolving]
  - Tendon disorder [Unknown]
  - Back pain [Recovering/Resolving]
  - Tinnitus [Recovering/Resolving]
  - Toxicity to various agents [Recovering/Resolving]
  - Leukopenia [Recovering/Resolving]
  - Epicondylitis [Unknown]
  - Chest pain [Recovering/Resolving]
  - Gingival pain [Recovering/Resolving]
  - Toothache [Recovering/Resolving]
  - Pruritus [Recovering/Resolving]
  - Insomnia [Recovering/Resolving]
  - Malaise [Recovering/Resolving]
  - Paraesthesia [Recovering/Resolving]
  - Abdominal pain [Recovering/Resolving]

NARRATIVE: CASE EVENT DATE: 200805
